FAERS Safety Report 8806416 (Version 2)
Quarter: 2013Q1

REPORT INFORMATION
  Report Type: Spontaneous
  Country: US (occurrence: None)
  Receive Date: 20120918
  Receipt Date: 20121231
  Transmission Date: 20140127
  Serious: Yes (Hospitalization, Other)
  Sender: FDA-Public Use
  Company Number: JPI-P-025024

PATIENT
  Age: 43 Year
  Sex: Female
  Weight: 58.97 kg

DRUGS (8)
  1. XYREM [Suspect]
     Indication: CATAPLEXY
     Dosage: 6 GM (3 GM, 2 IN 1 DAY), ORAL
     Route: 048
     Dates: start: 20090826
  2. XYREM (500 MILLIGRAM/MILLILITERS, SOLUTION) (SODIUM OXYBATE) [Suspect]
     Indication: SOMNOLENCE
     Route: 048
  3. MILNACIPRAN HYDROCHLORIDE [Concomitant]
  4. OXYCODONE [Concomitant]
  5. CYCLOBENZAPRINE HYDROCHLORIDE [Concomitant]
  6. NAPROXEN SODIUM [Concomitant]
  7. NABILONE [Concomitant]
  8. GABAPENTIN [Concomitant]

REACTIONS (16)
  - Dysstasia [None]
  - Pulmonary mass [None]
  - Pneumonia [None]
  - Dizziness [None]
  - Memory impairment [None]
  - Disorientation [None]
  - Dysgeusia [None]
  - Spinal fusion surgery [None]
  - Musculoskeletal chest pain [None]
  - Vomiting [None]
  - Abdominal pain upper [None]
  - Somnambulism [None]
  - Mucosal exfoliation [None]
  - Aphthous stomatitis [None]
  - Sinusitis [None]
  - Drug screen false positive [None]
